FAERS Safety Report 8117655-0 (Version None)
Quarter: 2012Q1

REPORT INFORMATION
  Report Type: 
  Country: None (occurrence: None)
  Receive Date: 20120203
  Receipt Date: 20120203
  Transmission Date: 20120608
  Serious: Yes (Hospitalization, Disabling)
  Sender: FDA-Public Use
  Company Number: None

PATIENT
  Sex: Female
  Weight: 58.9676 kg

DRUGS (2)
  1. CITALOPRAM HYDROBROMIDE [Suspect]
     Indication: DEPRESSION
     Dosage: CITALOPRAM 20 MG DAILY BY MOUTH
     Route: 048
     Dates: start: 20110511, end: 20110901
  2. LEXAPRO [Suspect]
     Dosage: LEXAPRO 10 MG DAILY BY MOUTH
     Route: 048
     Dates: start: 20110901, end: 20111031

REACTIONS (8)
  - LOGORRHOEA [None]
  - MENTAL STATUS CHANGES [None]
  - DISTURBANCE IN ATTENTION [None]
  - INAPPROPRIATE AFFECT [None]
  - DYSKINESIA [None]
  - PANIC ATTACK [None]
  - MEMORY IMPAIRMENT [None]
  - AKATHISIA [None]
